FAERS Safety Report 9339990 (Version 1)
Quarter: 2013Q2

REPORT INFORMATION
  Report Type: Spontaneous
  Country: BR (occurrence: BR)
  Receive Date: 20130610
  Receipt Date: 20130610
  Transmission Date: 20140414
  Serious: Yes (Death)
  Sender: FDA-Public Use
  Company Number: BR-PFIZER INC-2012011901

PATIENT
  Age: 58 Year
  Sex: Male
  Weight: 72 kg

DRUGS (9)
  1. SUTENT [Suspect]
     Indication: RENAL CELL CARCINOMA
     Dosage: 50 MG, DAILY (CYCLE 4 X 2)
     Route: 048
     Dates: start: 20120104
  2. MORPHINE [Concomitant]
     Dosage: 15 MG, EVERY 6 HOURS
  3. TORLOS H [Concomitant]
     Dosage: UNK
  4. DRAMIN [Concomitant]
     Dosage: UNK
  5. OMEPRAZOLE [Concomitant]
     Dosage: UNK, IN THE MORNING
  6. MINERAL OIL [Concomitant]
  7. TORVAL [Concomitant]
  8. FINASTERIDE [Concomitant]
  9. DUOMO [Concomitant]

REACTIONS (19)
  - Death [Fatal]
  - Nausea [Not Recovered/Not Resolved]
  - Vomiting [Not Recovered/Not Resolved]
  - Groin pain [Unknown]
  - Back pain [Not Recovered/Not Resolved]
  - Constipation [Not Recovered/Not Resolved]
  - Headache [Not Recovered/Not Resolved]
  - Anaemia [Unknown]
  - Oral pain [Not Recovered/Not Resolved]
  - Dyspepsia [Not Recovered/Not Resolved]
  - Decreased appetite [Not Recovered/Not Resolved]
  - Weight decreased [Unknown]
  - Chest pain [Unknown]
  - Back pain [Unknown]
  - Dry mouth [Not Recovered/Not Resolved]
  - Ageusia [Not Recovered/Not Resolved]
  - Eating disorder [Not Recovered/Not Resolved]
  - Diarrhoea [Not Recovered/Not Resolved]
  - Flatulence [Not Recovered/Not Resolved]
